FAERS Safety Report 10992419 (Version 1)
Quarter: 2015Q2

REPORT INFORMATION
  Report Type: Report from Study
  Country: BR (occurrence: BR)
  Receive Date: 20150406
  Receipt Date: 20150406
  Transmission Date: 20150821
  Serious: Yes (Other)
  Sender: FDA-Public Use
  Company Number: PHHY2015BR040476

PATIENT
  Sex: Male
  Weight: 91 kg

DRUGS (1)
  1. RASILEZ [Suspect]
     Active Substance: ALISKIREN
     Indication: HYPERTENSION
     Dosage: 150 MG, QD IN THE MORNING
     Route: 065

REACTIONS (8)
  - Retching [Recovering/Resolving]
  - Malaise [Recovering/Resolving]
  - Cerebrovascular accident [Unknown]
  - Headache [Unknown]
  - Drug ineffective [Unknown]
  - Stress [Unknown]
  - Dizziness [Unknown]
  - Blood pressure fluctuation [Unknown]
